FAERS Safety Report 17558903 (Version 1)
Quarter: 2020Q1

REPORT INFORMATION
  Report Type: Report from Study
  Country: CO (occurrence: CO)
  Receive Date: 20200319
  Receipt Date: 20200319
  Transmission Date: 20200409
  Serious: Yes (Other)
  Sender: FDA-Public Use
  Company Number: CO-ROCHE-2554415

PATIENT
  Age: 73 Year
  Sex: Female

DRUGS (5)
  1. BERODUAL [Concomitant]
     Active Substance: FENOTEROL HYDROBROMIDE\IPRATROPIUM BROMIDE
     Indication: PRODUCT USED FOR UNKNOWN INDICATION
     Dosage: 3 TIMES A DAY
     Route: 065
  2. FORMOTEROL [Concomitant]
     Active Substance: FORMOTEROL
     Indication: ASTHMA
     Dosage: 12 MG, BID STARTED 5 YEARS AGO
     Route: 065
  3. XOLAIR [Suspect]
     Active Substance: OMALIZUMAB
     Indication: ASTHMA
     Dosage: 300 MG, QW2, 1 AMPOULE IN EACH ARM EVERY 15 DAYS
     Route: 058
     Dates: end: 20141216
  4. XOLAIR [Suspect]
     Active Substance: OMALIZUMAB
     Indication: ASTHMA
     Dosage: UNK, QMO
     Route: 058
     Dates: start: 20130219
  5. BUDESONIDE. [Concomitant]
     Active Substance: BUDESONIDE
     Indication: ASTHMA
     Dosage: 200 MG, UNK
     Route: 065

REACTIONS (7)
  - Choking sensation [Unknown]
  - Chest pain [Recovered/Resolved with Sequelae]
  - Asphyxia [Recovered/Resolved with Sequelae]
  - Cough [Recovered/Resolved with Sequelae]
  - Pain [Recovered/Resolved with Sequelae]
  - Productive cough [Unknown]
  - Asthma [Unknown]
